FAERS Safety Report 4384936-6 (Version None)
Quarter: 2004Q2

REPORT INFORMATION
  Report Type: 
  Country: None (occurrence: None)
  Receive Date: 20040621
  Receipt Date: 20040609
  Transmission Date: 20050107
  Serious: Yes (Death)
  Sender: FDA-Public Use
  Company Number: US-JNJFOC-20040603002

PATIENT
  Age: 74 Year
  Sex: Female

DRUGS (1)
  1. RISPERDAL [Suspect]

REACTIONS (1)
  - DEATH [None]
